FAERS Safety Report 17533488 (Version 2)
Quarter: 2020Q1

REPORT INFORMATION
  Report Type: Spontaneous
  Country: US (occurrence: US)
  Receive Date: 20200312
  Receipt Date: 20200323
  Transmission Date: 20200409
  Serious: No
  Sender: FDA-Public Use
  Company Number: US-VERTEX PHARMACEUTICALS-2020-004732

PATIENT
  Age: 49 Year
  Sex: Female
  Weight: 65 kg

DRUGS (2)
  1. TRIKAFTA [Suspect]
     Active Substance: ELEXACAFTOR\IVACAFTOR\TEZACAFTOR
     Indication: CYSTIC FIBROSIS
     Dosage: 2 TABLETS(100MG ELEXACAFTOR/50MG TEZACAFTOR/75MG IVACAFTOR) AM
     Route: 048
     Dates: start: 20200221
  2. CAYSTON [Concomitant]
     Active Substance: AZTREONAM
     Dosage: UNK

REACTIONS (6)
  - Rash pruritic [Recovered/Resolved]
  - Sinusitis [Recovering/Resolving]
  - Productive cough [Recovered/Resolved]
  - Back pain [Not Recovered/Not Resolved]
  - Gastrointestinal pain [Recovered/Resolved]
  - Insomnia [Not Recovered/Not Resolved]

NARRATIVE: CASE EVENT DATE: 202002
